FAERS Safety Report 13251040 (Version 1)
Quarter: 2017Q1

REPORT INFORMATION
  Report Type: Spontaneous
  Country: HR (occurrence: HR)
  Receive Date: 20170220
  Receipt Date: 20170220
  Transmission Date: 20170428
  Serious: Yes (Life-Threatening, Hospitalization, Other)
  Sender: FDA-Public Use
  Company Number: HR-UCBSA-2017006744

PATIENT
  Age: 49 Year
  Sex: Female
  Weight: 60 kg

DRUGS (1)
  1. KEPPRA [Suspect]
     Active Substance: LEVETIRACETAM
     Indication: GENERALISED TONIC-CLONIC SEIZURE
     Dosage: UNK
     Route: 048
     Dates: start: 201407, end: 201702

REACTIONS (6)
  - Decreased activity [Recovering/Resolving]
  - Suicidal ideation [Recovering/Resolving]
  - Depression [Recovering/Resolving]
  - Crying [Recovering/Resolving]
  - Neurological decompensation [Recovering/Resolving]
  - Insomnia [Recovering/Resolving]

NARRATIVE: CASE EVENT DATE: 201407
